FAERS Safety Report 15810787 (Version 2)
Quarter: 2019Q1

REPORT INFORMATION
  Report Type: Report from Study
  Country: US (occurrence: US)
  Receive Date: 20190111
  Receipt Date: 20190327
  Transmission Date: 20190417
  Serious: Yes (Other)
  Sender: FDA-Public Use
  Company Number: US-TESAROUBC-2019-TSO00078-US

PATIENT
  Age: 69 Year
  Sex: Female
  Weight: 92.97 kg

DRUGS (3)
  1. ZEJULA [Suspect]
     Active Substance: NIRAPARIB
     Indication: OVARIAN CANCER RECURRENT
     Dosage: 300 MG, DAILY
     Route: 048
     Dates: start: 20180808, end: 20181217
  2. CYMBALTA [Concomitant]
     Active Substance: DULOXETINE HYDROCHLORIDE
     Indication: NEUROPATHY PERIPHERAL
  3. METFORMIN [Concomitant]
     Active Substance: METFORMIN HYDROCHLORIDE
     Indication: PRODUCT USED FOR UNKNOWN INDICATION

REACTIONS (13)
  - Abdominal pain [Recovering/Resolving]
  - Haemorrhage [Recovered/Resolved]
  - Nephrolithiasis [Unknown]
  - Pelvic pain [Recovering/Resolving]
  - Rash [Recovered/Resolved]
  - Drug intolerance [Unknown]
  - Contusion [Recovered/Resolved]
  - Tremor [Unknown]
  - Condition aggravated [Unknown]
  - Peripheral swelling [Unknown]
  - Pancytopenia [Unknown]
  - Malignant neoplasm progression [Unknown]
  - Drug ineffective [Unknown]

NARRATIVE: CASE EVENT DATE: 201812
